FAERS Safety Report 7321431 (Version 19)
Quarter: 2013Q3

REPORT INFORMATION
  Report Type: Spontaneous
  Country: US (occurrence: US)
  Receive Date: 20100316
  Receipt Date: 20130711
  Transmission Date: 20140515
  Serious: Yes (Hospitalization, Other)
  Sender: FDA-Public Use
  Company Number: US-ROCHE-665408

PATIENT
  Age: 18 Year
  Sex: Female
  Weight: 61.2 kg

DRUGS (6)
  1. ACCUTANE [Suspect]
     Indication: ACNE
     Route: 048
     Dates: start: 20010312, end: 20010412
  2. ACCUTANE [Suspect]
     Route: 048
     Dates: start: 20020625, end: 20020830
  3. AMNESTEEM [Suspect]
     Indication: ACNE
     Route: 065
     Dates: start: 20060318, end: 20060418
  4. SOTRET [Suspect]
     Indication: ACNE
     Route: 048
     Dates: start: 20060209, end: 20060309
  5. SOTRET [Suspect]
     Route: 048
     Dates: start: 20060425, end: 20060525
  6. ADVIL [Concomitant]

REACTIONS (12)
  - Crohn^s disease [Unknown]
  - Colitis ulcerative [Unknown]
  - Inflammatory bowel disease [Unknown]
  - Intestinal obstruction [Unknown]
  - Aphthous stomatitis [Unknown]
  - Neutrophilic dermatosis [Unknown]
  - Oesophagitis [Unknown]
  - Pyoderma gangrenosum [Unknown]
  - Depression [Unknown]
  - Anaemia [Recovered/Resolved]
  - Musculoskeletal pain [Unknown]
  - Arthritis [Unknown]
